FAERS Safety Report 9729674 (Version 3)
Quarter: 2015Q3

REPORT INFORMATION
  Report Type: Spontaneous
  Country: US (occurrence: US)
  Receive Date: 20131204
  Receipt Date: 20150804
  Transmission Date: 20151125
  Serious: No
  Sender: FDA-Public Use
  Company Number: US-GILEAD-2009-0020883

PATIENT
  Age: 80 Year
  Sex: Female
  Weight: 77.11 kg

DRUGS (10)
  1. REVATIO [Concomitant]
     Active Substance: SILDENAFIL CITRATE
  2. ASPIRIN. [Concomitant]
     Active Substance: ASPIRIN
  3. KLOR-CON [Concomitant]
     Active Substance: POTASSIUM CHLORIDE
  4. ATENOLOL. [Concomitant]
     Active Substance: ATENOLOL
  5. ALLOPURINOL. [Concomitant]
     Active Substance: ALLOPURINOL
  6. LASIX [Concomitant]
     Active Substance: FUROSEMIDE
  7. LISINOPRIL. [Concomitant]
     Active Substance: LISINOPRIL
  8. NEXIUM [Concomitant]
     Active Substance: ESOMEPRAZOLE MAGNESIUM
  9. LETAIRIS [Suspect]
     Active Substance: AMBRISENTAN
     Indication: PULMONARY ARTERIAL HYPERTENSION
     Route: 048
     Dates: start: 20090304
  10. NORVASC [Concomitant]
     Active Substance: AMLODIPINE BESYLATE

REACTIONS (1)
  - Swelling [Unknown]
